FAERS Safety Report 5836576-7 (Version None)
Quarter: 2008Q3

REPORT INFORMATION
  Report Type: 
  Country: None (occurrence: None)
  Receive Date: 20080807
  Receipt Date: 20080728
  Transmission Date: 20090109
  Serious: Yes (Hospitalization)
  Sender: FDA-Public Use
  Company Number: ES-ELI_LILLY_AND_COMPANY-ES200807005654

PATIENT
  Age: 90 Year
  Sex: Female

DRUGS (9)
  1. FORTEO [Suspect]
     Indication: OSTEOPOROSIS
     Dosage: 20 UG, UNKNOWN
     Route: 058
     Dates: start: 20080301
  2. LYRICA [Concomitant]
     Dosage: UNK, UNKNOWN
     Route: 065
  3. VENLAFAXINE HCL [Concomitant]
     Dosage: UNK, UNKNOWN
     Route: 065
  4. ACABEL [Concomitant]
     Dosage: UNK, UNKNOWN
     Route: 065
  5. ADALAT [Concomitant]
     Dosage: UNK, UNKNOWN
     Route: 065
  6. HYDROXIUM [Concomitant]
     Dosage: UNK, UNKNOWN
     Route: 065
  7. NOLOTIL [Concomitant]
     Dosage: UNK, UNKNOWN
     Route: 065
  8. ACETAMINOPHEN [Concomitant]
     Dosage: UNK, UNKNOWN
     Route: 065
  9. INDAPAMIDE [Concomitant]
     Dosage: UNK, UNKNOWN
     Route: 065

REACTIONS (4)
  - CONSTIPATION [None]
  - FALL [None]
  - METASTASES TO BONE [None]
  - PAIN [None]
